FAERS Safety Report 7954326-5 (Version None)
Quarter: 2011Q4

REPORT INFORMATION
  Report Type: 
  Country: None (occurrence: None)
  Receive Date: 20111202
  Receipt Date: 20111122
  Transmission Date: 20120403
  Serious: Yes (Hospitalization)
  Sender: FDA-Public Use
  Company Number: JP-UCBSA-045572

PATIENT
  Age: 60 Year
  Sex: Female

DRUGS (2)
  1. KEPPRA [Suspect]
     Indication: CONVULSION
     Route: 048
     Dates: start: 20111028
  2. VALPROATE SODIUM [Suspect]
     Indication: CONVULSION
     Dosage: ONE TIME DOSE: 1200 MG
     Route: 048
     Dates: end: 20111111

REACTIONS (2)
  - PYREXIA [None]
  - PANCYTOPENIA [None]
